FAERS Safety Report 17808192 (Version 8)
Quarter: 2020Q3

REPORT INFORMATION
  Report Type: Report from Study
  Country: CA (occurrence: CA)
  Receive Date: 20200520
  Receipt Date: 20200710
  Transmission Date: 20201102
  Serious: Yes (Other)
  Sender: FDA-Public Use
  Company Number: CA-PFIZER INC-2019561656

PATIENT
  Age: 56 Year
  Sex: Male

DRUGS (7)
  1. ENTYVIO [Suspect]
     Active Substance: VEDOLIZUMAB
     Indication: COLITIS ULCERATIVE
     Dosage: 300 MG
     Route: 042
     Dates: start: 20190612
  2. SALOFALK [AMINOSALICYLIC ACID] [Concomitant]
     Active Substance: AMINOSALICYLIC ACID
     Dosage: UNK
  3. PREDNISONE. [Concomitant]
     Active Substance: PREDNISONE
     Dosage: UNK (DECREASING)
  4. ENTYVIO [Suspect]
     Active Substance: VEDOLIZUMAB
     Dosage: 300 MG, CYCLIC (EVERY SIX WEEKS)
     Route: 042
  5. PANTOLOC [Suspect]
     Active Substance: PANTOPRAZOLE SODIUM
     Indication: GASTROOESOPHAGEAL REFLUX DISEASE
     Dosage: UNK
     Route: 065
  6. ENTYVIO [Suspect]
     Active Substance: VEDOLIZUMAB
     Dosage: 300 MG, CYCLIC (EVERY SIX WEEKS)
     Route: 042
     Dates: start: 20191224
  7. ENTYVIO [Suspect]
     Active Substance: VEDOLIZUMAB
     Dosage: 300 MG, CYCLIC (Q4WEEKS)
     Route: 042
     Dates: start: 20200611, end: 20200611

REACTIONS (1)
  - Colitis ulcerative [Not Recovered/Not Resolved]
